FAERS Safety Report 8539869-8 (Version None)
Quarter: 2012Q3

REPORT INFORMATION
  Report Type: 
  Country: None (occurrence: None)
  Receive Date: 20120726
  Receipt Date: 20120723
  Transmission Date: 20120928
  Serious: Yes (Other)
  Sender: FDA-Public Use
  Company Number: US-PFIZER INC-2012178080

PATIENT
  Sex: Female

DRUGS (7)
  1. HALOPERIDOL [Concomitant]
     Dosage: 1 MG, UNK
     Dates: start: 20120710
  2. PRAVACHOL [Concomitant]
     Dosage: 40 MG, UNK
     Dates: start: 20120710
  3. PROPRANOLOL HYDROCHLORIDE [Concomitant]
     Dosage: 20 MG, UNK
     Dates: start: 20120710
  4. FISH OIL [Concomitant]
     Dosage: 1000 MG, UNK
     Dates: start: 20120710
  5. NEURONTIN [Suspect]
     Dosage: 300 MG, 3X/DAY (2 CAPS PO TID)
     Route: 048
     Dates: start: 20120710
  6. MAXALT [Concomitant]
     Dosage: 10 MG, UNK
     Dates: start: 20120710
  7. PROMETHAZINE HYDROCHLORIDE [Concomitant]
     Dosage: 25 MG, UNK
     Dates: start: 20120710

REACTIONS (5)
  - MIGRAINE [None]
  - ESSENTIAL HYPERTENSION [None]
  - HYPERLIPIDAEMIA [None]
  - ANXIETY [None]
  - DEPRESSION [None]
